FAERS Safety Report 8130099-0 (Version None)
Quarter: 2011Q4

REPORT INFORMATION
  Report Type: 
  Country: None (occurrence: None)
  Receive Date: 20111227
  Receipt Date: 20110901
  Transmission Date: 20120403
  Serious: No
  Sender: FDA-Public Use
  Company Number: PHEH2011US03313

PATIENT
  Age: 62 Year
  Sex: Female

DRUGS (3)
  1. FAMPRIDINE (FAMPRIDINE) TABLET [Suspect]
     Indication: GAIT DISTURBANCE
     Dosage: 10 MG, Q12H, ORAL
     Route: 048
  2. GILENYA [Suspect]
     Dosage: UNK UKN, UNK UNK UKN, UNK
     Dates: start: 20110101, end: 20110101
  3. GILENYA [Suspect]
     Dosage: UNK UKN, UNK UNK UKN, UNK
     Dates: start: 20110101

REACTIONS (2)
  - UPPER RESPIRATORY TRACT INFECTION [None]
  - NAUSEA [None]
